FAERS Safety Report 8056679-9 (Version None)
Quarter: 2012Q1

REPORT INFORMATION
  Report Type: 
  Country: None (occurrence: None)
  Receive Date: 20120119
  Receipt Date: 20110411
  Transmission Date: 20120608
  Serious: No
  Sender: FDA-Public Use
  Company Number: US-SANOFI-AVENTIS-2011SA025664

PATIENT
  Sex: Female

DRUGS (1)
  1. LASIX [Suspect]
     Route: 065

REACTIONS (1)
  - UNEVALUABLE EVENT [None]
